FAERS Safety Report 15734437 (Version 1)
Quarter: 2018Q4

REPORT INFORMATION
  Report Type: Spontaneous
  Country: GB (occurrence: GB)
  Receive Date: 20181218
  Receipt Date: 20181218
  Transmission Date: 20190205
  Serious: Yes (Disabling)
  Sender: FDA-Public Use
  Company Number: PHHY2018GB188043

PATIENT
  Age: 13 Year
  Sex: Male
  Weight: 49 kg

DRUGS (2)
  1. ETANERCEPT [Concomitant]
     Active Substance: ETANERCEPT
     Indication: PRODUCT USED FOR UNKNOWN INDICATION
     Dosage: 12.5 MG, UNK
     Route: 058
  2. METHOTREXATE INJECTION [Suspect]
     Active Substance: METHOTREXATE
     Indication: ARTHRITIS
     Dosage: 12.5 MG, QD
     Route: 058
     Dates: start: 20051123, end: 20071030

REACTIONS (1)
  - Cardiovascular disorder [Not Recovered/Not Resolved]

NARRATIVE: CASE EVENT DATE: 20091217
